FAERS Safety Report 22315596 (Version 2)
Quarter: 2023Q2

REPORT INFORMATION
  Report Type: Spontaneous
  Country: US (occurrence: US)
  Receive Date: 20230512
  Receipt Date: 20230526
  Transmission Date: 20230721
  Serious: No
  Sender: FDA-Public Use
  Company Number: US-BRISTOL-MYERS SQUIBB COMPANY-2023-067764

PATIENT
  Age: 60 Year
  Sex: Male
  Weight: 82.7 kg

DRUGS (1)
  1. LENALIDOMIDE [Suspect]
     Active Substance: LENALIDOMIDE
     Indication: Plasma cell myeloma
     Dosage: DAILY MONDAY THROUGH FRIDAY, DO NOT TAKE ON WEEKENDS, EVERY 28 DAYS
     Route: 048
     Dates: start: 20190301

REACTIONS (5)
  - Illness [Unknown]
  - Headache [Unknown]
  - Off label use [Unknown]
  - Gastric infection [Recovered/Resolved]
  - Pyrexia [Recovered/Resolved]
